FAERS Safety Report 19381806 (Version 1)
Quarter: 2021Q2

REPORT INFORMATION
  Report Type: Other
  Country: CA (occurrence: CA)
  Receive Date: 20210607
  Receipt Date: 20210607
  Transmission Date: 20210717
  Serious: Yes (Other)
  Sender: FDA-Public Use
  Company Number: CA-APOTEX-2021AP013075

PATIENT
  Age: 30 Year
  Sex: Female

DRUGS (13)
  1. MYCOPHENOLATE MOFETIL. [Suspect]
     Active Substance: MYCOPHENOLATE MOFETIL
     Dosage: 1 GRAM, BID
     Route: 048
  2. RITUXIMAB. [Suspect]
     Active Substance: RITUXIMAB
     Indication: INFLAMMATORY PSEUDOTUMOUR
     Dosage: 700 MILLIGRAM, Q.WK.
     Route: 042
  3. AMITRIPTYLINE [Concomitant]
     Active Substance: AMITRIPTYLINE
     Indication: PRODUCT USED FOR UNKNOWN INDICATION
     Dosage: 50 MILLIGRAM, QD
     Route: 065
  4. FROVATRIPTAN. [Concomitant]
     Active Substance: FROVATRIPTAN
     Indication: MIGRAINE
     Dosage: 2.5 MILLIGRAM
     Route: 065
  5. MYCOPHENOLATE MOFETIL. [Suspect]
     Active Substance: MYCOPHENOLATE MOFETIL
     Indication: INFLAMMATORY PSEUDOTUMOUR
     Dosage: UNK, BID (THERAPY DURATION ?60.0 UNIT NOT PROVIDED)
     Route: 048
  6. RITUXIMAB. [Suspect]
     Active Substance: RITUXIMAB
     Indication: VASCULITIS
     Dosage: 711 MILLIGRAM, Q.WK.
     Route: 042
  7. DROSPIRENONE/ETHINYLESTRADIOL [Concomitant]
     Active Substance: DROSPIRENONE\ETHINYL ESTRADIOL
     Indication: PRODUCT USED FOR UNKNOWN INDICATION
     Dosage: UNK
     Route: 065
  8. SEPTRA [Concomitant]
     Active Substance: SULFAMETHOXAZOLE\TRIMETHOPRIM
     Indication: ANTIFUNGAL PROPHYLAXIS
     Dosage: UNK, TID
     Route: 065
  9. VERAPAMIL [Concomitant]
     Active Substance: VERAPAMIL HYDROCHLORIDE
     Indication: PRODUCT USED FOR UNKNOWN INDICATION
     Dosage: 120 MILLIGRAM, TID
     Route: 065
  10. TYLENOL [Concomitant]
     Active Substance: ACETAMINOPHEN
     Indication: PRODUCT USED FOR UNKNOWN INDICATION
     Dosage: 600 MILLIGRAM
     Route: 048
  11. PREDNISONE. [Suspect]
     Active Substance: PREDNISONE
     Indication: INFLAMMATORY PSEUDOTUMOUR
     Dosage: 20 MILLIGRAM, QD
     Route: 065
  12. BENADRYL [Concomitant]
     Active Substance: DIPHENHYDRAMINE HYDROCHLORIDE
     Indication: PREMEDICATION
     Dosage: 50 MILLIGRAM
     Route: 048
  13. METHYLPREDNISOLONE SODIUM SUCCINATE. [Concomitant]
     Active Substance: METHYLPREDNISOLONE SODIUM SUCCINATE
     Indication: ANTIFUNGAL PROPHYLAXIS
     Dosage: 100 MILLIGRAM
     Route: 042

REACTIONS (11)
  - Eye pain [Recovered/Resolved]
  - Eye swelling [Recovered/Resolved]
  - Off label use [Recovered/Resolved]
  - Blood pressure diastolic increased [Recovered/Resolved]
  - Blood pressure fluctuation [Recovered/Resolved]
  - Infusion related reaction [Recovered/Resolved]
  - Diplopia [Recovered/Resolved]
  - Eye haemorrhage [Recovered/Resolved]
  - Intentional product use issue [Recovered/Resolved]
  - Eye inflammation [Recovered/Resolved]
  - Heart rate increased [Recovered/Resolved]
